FAERS Safety Report 19366808 (Version 2)
Quarter: 2021Q2

REPORT INFORMATION
  Report Type: Spontaneous
  Country: ES (occurrence: ES)
  Receive Date: 20210603
  Receipt Date: 20210616
  Transmission Date: 20210717
  Serious: Yes (Disabling)
  Sender: FDA-Public Use
  Company Number: ES-SA-2021SA181571

PATIENT
  Sex: Male

DRUGS (7)
  1. DUPIXENT [Suspect]
     Active Substance: DUPILUMAB
     Indication: ASTHMA
     Dosage: 300 MG, Q15D
     Route: 058
  2. APREMILAST [Concomitant]
     Active Substance: APREMILAST
  3. METHOTREXATE. [Concomitant]
     Active Substance: METHOTREXATE
  4. DUPIXENT [Suspect]
     Active Substance: DUPILUMAB
     Indication: DERMATITIS ATOPIC
     Dosage: 600 MG, 1X
     Route: 058
  5. AZATHIOPRINE. [Concomitant]
     Active Substance: AZATHIOPRINE
  6. CYCLOSPORINE. [Concomitant]
     Active Substance: CYCLOSPORINE
     Dosage: 125 MG, BID
  7. SIMBRINZA [Concomitant]
     Active Substance: BRIMONIDINE TARTRATE\BRINZOLAMIDE

REACTIONS (15)
  - Lichenification [Unknown]
  - Dermatitis atopic [Unknown]
  - Depressed mood [Unknown]
  - Pruritus [Recovering/Resolving]
  - Decreased interest [Unknown]
  - Asthma [Recovered/Resolved]
  - Skin lesion [Unknown]
  - Insomnia [Unknown]
  - Loss of personal independence in daily activities [Unknown]
  - Poor quality sleep [Unknown]
  - Anxiety [Unknown]
  - Papule [Unknown]
  - Wheezing [Unknown]
  - Eosinophilia [Unknown]
  - Eczema [Recovering/Resolving]
